FAERS Safety Report 5927379-3 (Version None)
Quarter: 2008Q4

REPORT INFORMATION
  Report Type: 
  Country: None (occurrence: None)
  Receive Date: 20081021
  Receipt Date: 20081021
  Transmission Date: 20090506
  Serious: No
  Sender: FDA-Public Use
  Company Number: None

PATIENT
  Age: 25 Year
  Sex: Female

DRUGS (1)
  1. MIRENA [Suspect]
     Dates: start: 20070812

REACTIONS (3)
  - BACTERIAL INFECTION [None]
  - DYSMENORRHOEA [None]
  - MENORRHAGIA [None]
